FAERS Safety Report 18719359 (Version 2)
Quarter: 2021Q1

REPORT INFORMATION
  Report Type: Spontaneous
  Country: JP (occurrence: JP)
  Receive Date: 20210108
  Receipt Date: 20210127
  Transmission Date: 20210419
  Serious: Yes (Hospitalization, Other)
  Sender: FDA-Public Use
  Company Number: JP-009507513-2012JPN000287J

PATIENT
  Age: 43 Year
  Sex: Male

DRUGS (14)
  1. ATARAX?P [Concomitant]
     Active Substance: HYDROXYZINE HYDROCHLORIDE
     Dosage: UNK
     Route: 065
  2. BELSOMRA [Interacting]
     Active Substance: SUVOREXANT
     Dosage: 15 MILLIGRAM, QD
     Route: 048
     Dates: start: 2020
  3. NITRAZEPAM [Concomitant]
     Active Substance: NITRAZEPAM
     Dosage: UNK
     Route: 048
     Dates: end: 2020
  4. NITRAZEPAM [Concomitant]
     Active Substance: NITRAZEPAM
     Dosage: 3?4 TIMES OF DOSAGE
     Route: 048
     Dates: start: 20200729, end: 20200729
  5. AMOXAN [Concomitant]
     Active Substance: AMOXAPINE
     Dosage: UNK
     Route: 048
     Dates: end: 2020
  6. ETIZOLAM [Concomitant]
     Active Substance: ETIZOLAM
     Dosage: UNK
     Route: 065
  7. BELSOMRA [Suspect]
     Active Substance: SUVOREXANT
     Indication: INSOMNIA
     Dosage: 15 MILLIGRAM, QD
     Route: 048
     Dates: start: 201812, end: 20200728
  8. AMOXAN [Concomitant]
     Active Substance: AMOXAPINE
     Dosage: 3?4 TIMES OF DOSAGE
     Route: 048
     Dates: start: 20200729, end: 20200729
  9. BELSOMRA [Interacting]
     Active Substance: SUVOREXANT
     Dosage: 15 MILLIGRAM, 3?4 TABLETS
     Route: 048
     Dates: start: 20200729, end: 20200729
  10. SYMTUZA [Interacting]
     Active Substance: COBICISTAT\DARUNAVIR\EMTRICITABINE\TENOFOVIR ALAFENAMIDE
     Indication: HIV INFECTION
     Dosage: 1 DOSAGE FORM, QD
     Route: 048
     Dates: start: 202002
  11. FLUNITRAZEPAM [Concomitant]
     Active Substance: FLUNITRAZEPAM
     Dosage: UNK
     Route: 048
     Dates: end: 2020
  12. BROTIZOLAM [Concomitant]
     Active Substance: BROTIZOLAM
     Dosage: UNK
     Route: 048
     Dates: end: 2020
  13. FLUNITRAZEPAM [Concomitant]
     Active Substance: FLUNITRAZEPAM
     Dosage: 3?4 TIMES OF DOSAGE
     Route: 048
     Dates: start: 20200729, end: 20200729
  14. BROTIZOLAM [Concomitant]
     Active Substance: BROTIZOLAM
     Dosage: 3?4 TIMES OF DOSAGE
     Route: 048
     Dates: start: 20200729, end: 20200729

REACTIONS (6)
  - Overdose [Unknown]
  - Depressed level of consciousness [Recovered/Resolved]
  - Blepharospasm [Unknown]
  - Hypersomnia [Recovered/Resolved]
  - Drug interaction [Unknown]
  - Underdose [Unknown]

NARRATIVE: CASE EVENT DATE: 201812
